FAERS Safety Report 8189408-9 (Version None)
Quarter: 2012Q1

REPORT INFORMATION
  Report Type: 
  Country: None (occurrence: None)
  Receive Date: 20120302
  Receipt Date: 20120220
  Transmission Date: 20120608
  Serious: Yes (Other)
  Sender: FDA-Public Use
  Company Number: MY-1190674

PATIENT
  Age: 3 Month
  Sex: Male

DRUGS (8)
  1. FERRIC AMMONIUM CITRATE [Concomitant]
  2. BETAMETHASONE VALERATE W/GENTAMICIN/MICONAZOL [Concomitant]
  3. MULTI-VITAMIN [Concomitant]
  4. FOLIC ACID [Concomitant]
  5. PRED [Concomitant]
  6. NEVANAC [Suspect]
     Indication: RETINOPATHY
     Dosage: (1 GTT TID OU OPHTHALMIC)
     Route: 047
     Dates: start: 20110107, end: 20110110
  7. OMEPRAZOLE [Concomitant]
  8. METOCLOPRAMIDE [Concomitant]

REACTIONS (1)
  - CORNEAL OPACITY [None]
